FAERS Safety Report 7571381-5 (Version None)
Quarter: 2011Q2

REPORT INFORMATION
  Report Type: 
  Country: None (occurrence: None)
  Receive Date: 20110624
  Receipt Date: 20110621
  Transmission Date: 20111010
  Serious: Yes (Hospitalization)
  Sender: FDA-Public Use
  Company Number: FR-PFIZER INC-2011136449

PATIENT
  Age: 29 Year
  Sex: Male

DRUGS (8)
  1. CLONAZEPAM [Suspect]
     Dosage: 2 MG, UP TO 10 TIMES DAILY
     Route: 048
  2. NEURONTIN [Suspect]
     Dosage: UNK
  3. CODEINE PHOSPHATE AND ACETAMINOPHEN [Suspect]
     Dosage: 1 DF, 12 TIMES DAILY
     Route: 048
  4. MORPHINE SULFATE [Suspect]
     Dosage: UNK
  5. LACOSAMIDE [Suspect]
     Dosage: UNK
  6. MEPRONIZINE [Suspect]
     Dosage: 1 DF, 2 TO 4 TIMES DAILY
     Route: 048
  7. PHENYTOIN [Suspect]
     Dosage: UNK
  8. TRAMADOL HCL [Suspect]
     Dosage: 200 MG, 8 TIMES DAILY
     Route: 048

REACTIONS (3)
  - HEADACHE [None]
  - SLEEP DISORDER [None]
  - DRUG ABUSE [None]
